FAERS Safety Report 11320404 (Version 2)
Quarter: 2015Q3

REPORT INFORMATION
  Report Type: Spontaneous
  Country: DE (occurrence: DE)
  Receive Date: 20150729
  Receipt Date: 20150827
  Transmission Date: 20151125
  Serious: Yes (Other)
  Sender: FDA-Public Use
  Company Number: GXKR2015DE003552

PATIENT
  Age: 89 Year
  Sex: Male
  Weight: 78 kg

DRUGS (3)
  1. MIRTAZAPINE. [Interacting]
     Active Substance: MIRTAZAPINE
     Indication: DEPRESSION
     Dosage: 30 MG, UNK
     Route: 048
     Dates: start: 2010
  2. CIPROHEXAL (CIPROFLOXACIN) [Suspect]
     Active Substance: CIPROFLOXACIN
     Indication: CYSTITIS
     Dosage: 500 MG, BID
     Route: 048
  3. CIPROHEXAL (CIPROFLOXACIN) [Interacting]
     Active Substance: CIPROFLOXACIN
     Dosage: 250 MG, TID
     Route: 048

REACTIONS (2)
  - Serotonin syndrome [Unknown]
  - Depressed mood [Recovered/Resolved]

NARRATIVE: CASE EVENT DATE: 20150724
